FAERS Safety Report 23298851 (Version 1)
Quarter: 2023Q4

REPORT INFORMATION
  Report Type: Spontaneous
  Country: US (occurrence: US)
  Receive Date: 20231215
  Receipt Date: 20231215
  Transmission Date: 20240110
  Serious: Yes (Hospitalization)
  Sender: FDA-Public Use
  Company Number: US-ELI_LILLY_AND_COMPANY-US202312004446

PATIENT
  Age: 72 Year
  Sex: Female

DRUGS (1)
  1. VERZENIO [Suspect]
     Active Substance: ABEMACICLIB
     Indication: Sarcoma
     Dosage: 150 MG, BID
     Route: 048
     Dates: start: 202306

REACTIONS (2)
  - Pancreatitis [Unknown]
  - Off label use [Unknown]
